FAERS Safety Report 15427290 (Version 1)
Quarter: 2018Q3

REPORT INFORMATION
  Report Type: Spontaneous
  Country: US (occurrence: US)
  Receive Date: 20180925
  Receipt Date: 20180925
  Transmission Date: 20181010
  Serious: Yes (Other)
  Sender: FDA-Public Use
  Company Number: US-GE HEALTHCARE LIFE SCIENCES-2018CSU003773

PATIENT
  Age: 51 Year
  Sex: Female
  Weight: 95 kg

DRUGS (1)
  1. OMNIPAQUE [Suspect]
     Active Substance: IOHEXOL
     Indication: PELVIC PAIN
     Dosage: 142 ML, SINGLE
     Route: 042
     Dates: start: 20180809, end: 20180809

REACTIONS (2)
  - Pruritus [Unknown]
  - Dry mouth [Unknown]

NARRATIVE: CASE EVENT DATE: 20180809
